FAERS Safety Report 8197340-X (Version None)
Quarter: 2012Q1

REPORT INFORMATION
  Report Type: 
  Country: None (occurrence: None)
  Receive Date: 20120309
  Receipt Date: 20110805
  Transmission Date: 20120608
  Serious: No
  Sender: FDA-Public Use
  Company Number: US-BRISTOL-MYERS SQUIBB COMPANY-15950934

PATIENT

DRUGS (2)
  1. RECOTHROM [Suspect]
     Dosage: RECOTHROM 5000 I.U. VIALS
  2. THROMBIN,BOVINE [Suspect]

REACTIONS (1)
  - DRUG DISPENSING ERROR [None]
